FAERS Safety Report 8353970-3 (Version None)
Quarter: 2012Q2

REPORT INFORMATION
  Report Type: 
  Country: None (occurrence: None)
  Receive Date: 20120511
  Receipt Date: 20120503
  Transmission Date: 20120825
  Serious: Yes (Hospitalization)
  Sender: FDA-Public Use
  Company Number: US-ASTRAZENECA-2012SE28973

PATIENT
  Age: 86 Year
  Sex: Female

DRUGS (3)
  1. TOPROL-XL [Suspect]
     Route: 048
  2. DILANTIN [Concomitant]
  3. CRESTOR [Suspect]
     Route: 048

REACTIONS (1)
  - CONVULSION [None]
